FAERS Safety Report 6005398-9 (Version None)
Quarter: 2008Q4

REPORT INFORMATION
  Report Type: 
  Country: None (occurrence: None)
  Receive Date: 20081216
  Receipt Date: 20081215
  Transmission Date: 20090506
  Serious: No
  Sender: FDA-Public Use
  Company Number: FR-BRISTOL-MYERS SQUIBB COMPANY-14407670

PATIENT
  Age: 35 Year
  Sex: Male

DRUGS (4)
  1. ABILIFY [Suspect]
     Indication: SCHIZOPHRENIA
     Route: 048
     Dates: start: 20050501
  2. EFFEXOR [Concomitant]
     Indication: SCHIZOPHRENIA
     Route: 048
     Dates: start: 20060201, end: 20081101
  3. EFFEXOR [Concomitant]
     Indication: DEPRESSION
     Route: 048
     Dates: start: 20060201, end: 20081101
  4. PRAZINIL [Concomitant]
     Dosage: FORM TABLET.
     Route: 048
     Dates: start: 20070301

REACTIONS (2)
  - GLAUCOMA [None]
  - OPEN ANGLE GLAUCOMA [None]
